FAERS Safety Report 7859909-9 (Version None)
Quarter: 2011Q4

REPORT INFORMATION
  Report Type: 
  Country: None (occurrence: None)
  Receive Date: 20111027
  Receipt Date: 20111024
  Transmission Date: 20120403
  Serious: Yes (Other)
  Sender: FDA-Public Use
  Company Number: AU-PFIZER INC-2011256149

PATIENT
  Sex: Male

DRUGS (2)
  1. ATACAND [Concomitant]
     Dosage: 8MG, UNK
  2. LIPITOR [Suspect]
     Dosage: 10 MG, UNK

REACTIONS (5)
  - DYSPEPSIA [None]
  - GASTROOESOPHAGEAL REFLUX DISEASE [None]
  - ANAEMIA [None]
  - HAEMATOCHEZIA [None]
  - ABDOMINAL DISTENSION [None]
